FAERS Safety Report 5354368-2 (Version None)
Quarter: 2007Q2

REPORT INFORMATION
  Report Type: 
  Country: None (occurrence: None)
  Receive Date: 20070521
  Receipt Date: 20070406
  Transmission Date: 20071010
  Serious: No
  Sender: FDA-Public Use
  Company Number: WAES 0704USA01188

PATIENT

DRUGS (3)
  1. JANUVIA [Suspect]
     Dosage: PO
     Route: 048
  2. GLYBURIDE [Concomitant]
  3. METFORMIN HCL [Concomitant]

REACTIONS (2)
  - BLOOD GLUCOSE DECREASED [None]
  - SKIN IRRITATION [None]
